FAERS Safety Report 5141738-0 (Version None)
Quarter: 2006Q4

REPORT INFORMATION
  Report Type: 
  Country: None (occurrence: None)
  Receive Date: 20061027
  Receipt Date: 20060626
  Transmission Date: 20070319
  Serious: Yes (Other)
  Sender: FDA-Public Use
  Company Number: JP_031102113

PATIENT
  Age: 1 Day
  Sex: 0
  Weight: 3.6 kg

DRUGS (3)
  1. HUMALOG [Suspect]
     Dosage: TRANSPLACENTAL
     Route: 064
     Dates: end: 20030828
  2. PENFILL N (INSULIN HUMAN INJECTION, ISOPHANE) [Concomitant]
  3. HUMALOG PEN [Concomitant]

REACTIONS (3)
  - DRUG EXPOSURE DURING PREGNANCY [None]
  - INFANTILE APNOEIC ATTACK [None]
  - LARGE FOR DATES BABY [None]
